FAERS Safety Report 4704965-X (Version None)
Quarter: 2005Q2

REPORT INFORMATION
  Report Type: 
  Country: None (occurrence: None)
  Receive Date: 20050629
  Receipt Date: 20050629
  Transmission Date: 20051028
  Serious: Yes (Other)
  Sender: FDA-Public Use
  Company Number: None

PATIENT
  Age: 36 Year
  Sex: Male
  Weight: 55.3388 kg

DRUGS (1)
  1. PPD (PARKDALE PURIFIED PROTEIN DERIVATIVE) [Suspect]
     Indication: TUBERCULIN TEST
     Dosage: 5TU 0.1 CC SINGLE DOSE

REACTIONS (2)
  - PHARMACEUTICAL PRODUCT COMPLAINT [None]
  - SKIN TEST POSITIVE [None]
